FAERS Safety Report 15846286 (Version 1)
Quarter: 2019Q1

REPORT INFORMATION
  Report Type: Spontaneous
  Country: AT (occurrence: AT)
  Receive Date: 20190120
  Receipt Date: 20190120
  Transmission Date: 20190417
  Serious: Yes (Other)
  Sender: FDA-Public Use
  Company Number: AT-OTSUKA-2019_001155

PATIENT
  Age: 27 Year
  Sex: Male

DRUGS (19)
  1. ZYPREXA [Concomitant]
     Active Substance: OLANZAPINE
     Dosage: 10 MG, UNK
     Route: 065
     Dates: start: 20181221
  2. ABILIFY MAINTENA [Suspect]
     Active Substance: ARIPIPRAZOLE
     Indication: PRODUCT USED FOR UNKNOWN INDICATION
     Dosage: 400 MG, UNK
     Route: 030
     Dates: start: 20181214, end: 20181214
  3. LITHIUM. [Suspect]
     Active Substance: LITHIUM
     Dosage: 1575 MG, UNK
     Route: 065
     Dates: start: 20190103
  4. TOPAMAX [Suspect]
     Active Substance: TOPIRAMATE
     Dosage: 150 MG, UNK
     Route: 065
     Dates: start: 20181212, end: 20181212
  5. LITHIUM. [Suspect]
     Active Substance: LITHIUM
     Dosage: 1350 MG, UNK
     Route: 065
     Dates: start: 20181209, end: 20181214
  6. ZYPREXA [Concomitant]
     Active Substance: OLANZAPINE
     Indication: PRODUCT USED FOR UNKNOWN INDICATION
     Dosage: 20-15 MG, UNK
     Route: 065
     Dates: start: 20181207, end: 20181220
  7. DEPAKINE [Suspect]
     Active Substance: VALPROATE SODIUM
     Indication: PRODUCT USED FOR UNKNOWN INDICATION
     Dosage: 2400 MG, UNK
     Route: 065
     Dates: start: 20181126, end: 20181220
  8. DEPAKINE [Suspect]
     Active Substance: VALPROATE SODIUM
     Dosage: 2000 MG, UNK
     Route: 065
     Dates: start: 20181221
  9. DEPAKINE [Suspect]
     Active Substance: VALPROATE SODIUM
     Dosage: 1800 MG, UNK
     Route: 065
     Dates: start: 20181123, end: 20181126
  10. TOPAMAX [Suspect]
     Active Substance: TOPIRAMATE
     Indication: PRODUCT USED FOR UNKNOWN INDICATION
     Dosage: 200 MG, UNK
     Route: 065
     Dates: start: 20181215, end: 20181221
  11. TOPAMAX [Suspect]
     Active Substance: TOPIRAMATE
     Dosage: 75 MG, UNK
     Route: 065
     Dates: start: 20181211, end: 20181211
  12. ABILIFY [Suspect]
     Active Substance: ARIPIPRAZOLE
     Indication: PRODUCT USED FOR UNKNOWN INDICATION
     Dosage: 30 MG, UNK
     Route: 065
     Dates: start: 20181207, end: 20181227
  13. LITHIUM. [Suspect]
     Active Substance: LITHIUM
     Indication: PRODUCT USED FOR UNKNOWN INDICATION
     Dosage: 1800 MG, UNK
     Route: 065
     Dates: start: 20181214, end: 20190102
  14. ZYPREXA [Concomitant]
     Active Substance: OLANZAPINE
     Dosage: 30 MG, UNK
     Route: 065
     Dates: start: 20181127, end: 20181206
  15. ABILIFY [Suspect]
     Active Substance: ARIPIPRAZOLE
     Dosage: 10 MG, UNK
     Route: 065
     Dates: start: 20181123, end: 20181206
  16. TOPAMAX [Suspect]
     Active Substance: TOPIRAMATE
     Dosage: 225 MG, UNK
     Route: 065
     Dates: start: 20181213, end: 20181214
  17. TOPAMAX [Suspect]
     Active Substance: TOPIRAMATE
     Dosage: 150 MG, UNK
     Route: 065
     Dates: start: 20181222, end: 20190104
  18. TOPAMAX [Suspect]
     Active Substance: TOPIRAMATE
     Dosage: 100 MG, UNK
     Route: 065
     Dates: start: 20190105, end: 20190107
  19. LITHIUM. [Suspect]
     Active Substance: LITHIUM
     Dosage: 450 MG, UNK
     Route: 065
     Dates: start: 20181203, end: 20181208

REACTIONS (1)
  - Hyperammonaemia [Recovered/Resolved]

NARRATIVE: CASE EVENT DATE: 20181220
